FAERS Safety Report 24042890 (Version 1)
Quarter: 2024Q3

REPORT INFORMATION
  Report Type: Spontaneous
  Country: ES (occurrence: ES)
  Receive Date: 20240702
  Receipt Date: 20240702
  Transmission Date: 20241017
  Serious: Yes (Other)
  Sender: PFIZER
  Company Number: None

PATIENT
  Age: 72 Year
  Sex: Male
  Weight: 88 kg

DRUGS (2)
  1. METHYLPREDNISOLONE SODIUM SUCCINATE [Interacting]
     Active Substance: METHYLPREDNISOLONE SODIUM SUCCINATE
     Indication: Immunosuppression
     Dosage: 125 MG, SINGLE
     Route: 042
     Dates: start: 20240419, end: 20240419
  2. PREDNISONE [Interacting]
     Active Substance: PREDNISONE
     Indication: Immunosuppression
     Dosage: 300 MG, SINGLE
     Route: 048
     Dates: start: 20240420, end: 20240420

REACTIONS (3)
  - Drug interaction [Recovered/Resolved]
  - Condition aggravated [Recovered/Resolved]
  - Hyperglycaemia [Recovered/Resolved]

NARRATIVE: CASE EVENT DATE: 20240421
